FAERS Safety Report 13636758 (Version 1)
Quarter: 2017Q2

REPORT INFORMATION
  Report Type: Spontaneous
  Country: US (occurrence: US)
  Receive Date: 20170609
  Receipt Date: 20170609
  Transmission Date: 20170830
  Serious: No
  Sender: FDA-Public Use
  Company Number: US-SHIRE-US201711892

PATIENT
  Age: 76 Year
  Sex: Female
  Weight: 101.13 kg

DRUGS (2)
  1. GEN-NAPROXEN EC [Concomitant]
     Indication: ARTHRITIS
     Dosage: 500 MG, 1X/DAY:QD
     Route: 048
     Dates: start: 2013
  2. XIIDRA [Suspect]
     Active Substance: LIFITEGRAST
     Indication: DRY EYE
     Dosage: 1 GTT, 2X/DAY:BID
     Route: 047
     Dates: start: 20170516, end: 20170524

REACTIONS (3)
  - Instillation site reaction [Recovered/Resolved]
  - Eye disorder [Recovered/Resolved]
  - Instillation site pain [Recovered/Resolved]

NARRATIVE: CASE EVENT DATE: 20170516
